FAERS Safety Report 12847608 (Version 1)
Quarter: 2016Q4

REPORT INFORMATION
  Report Type: Spontaneous
  Country: US (occurrence: US)
  Receive Date: 20161014
  Receipt Date: 20161014
  Transmission Date: 20170207
  Serious: Yes (Hospitalization, Other)
  Sender: FDA-Public Use
  Company Number: US-ELI_LILLY_AND_COMPANY-US201610001819

PATIENT
  Age: 66 Year
  Sex: Female

DRUGS (4)
  1. HUMULIN R [Suspect]
     Active Substance: INSULIN HUMAN
     Indication: TYPE 2 DIABETES MELLITUS
     Dosage: UNK, UNKNOWN
     Route: 065
     Dates: end: 201606
  2. METFORMIN [Concomitant]
     Active Substance: METFORMIN HYDROCHLORIDE
  3. HUMULIN R U-500 [Suspect]
     Active Substance: INSULIN HUMAN
     Indication: TYPE 2 DIABETES MELLITUS
     Dosage: 105 U, BID
     Route: 065
     Dates: start: 201607
  4. HUMULIN 70/30 [Suspect]
     Active Substance: INSULIN HUMAN
     Indication: TYPE 2 DIABETES MELLITUS
     Dosage: 3 U, UNKNOWN
     Route: 065
     Dates: end: 201606

REACTIONS (13)
  - Visual impairment [Unknown]
  - Kidney infection [Unknown]
  - Feeling abnormal [Unknown]
  - Fall [Unknown]
  - Blood glucose increased [Unknown]
  - Urinary tract infection [Unknown]
  - Stress [Unknown]
  - Thrombosis [Unknown]
  - Blood glucose increased [Unknown]
  - Dizziness [Unknown]
  - Drug dose omission [Unknown]
  - Coronary artery occlusion [Unknown]
  - Cardiac disorder [Unknown]

NARRATIVE: CASE EVENT DATE: 20161004
